FAERS Safety Report 9909472 (Version 1)
Quarter: 2014Q1

REPORT INFORMATION
  Report Type: Spontaneous
  Country: SE (occurrence: None)
  Receive Date: 20140212
  Receipt Date: 20140212
  Transmission Date: 20141002
  Serious: No
  Sender: FDA-Public Use
  Company Number: 2014P1000989

PATIENT
  Age: 71 Year
  Sex: Male

DRUGS (2)
  1. CITALOPRAM [Suspect]
  2. PARACETAMOL [Suspect]

REACTIONS (2)
  - Gun shot wound [None]
  - Completed suicide [None]
